FAERS Safety Report 6158068-0 (Version None)
Quarter: 2009Q2

REPORT INFORMATION
  Report Type: 
  Country: None (occurrence: None)
  Receive Date: 20090417
  Receipt Date: 20090407
  Transmission Date: 20091009
  Serious: Yes (Other)
  Sender: FDA-Public Use
  Company Number: KR-PFIZER INC-2009195611

PATIENT

DRUGS (1)
  1. PROVERA [Suspect]
     Route: 048
     Dates: start: 20090309

REACTIONS (1)
  - HAEMORRHAGE URINARY TRACT [None]
